FAERS Safety Report 4926560-X (Version None)
Quarter: 2006Q1

REPORT INFORMATION
  Report Type: 
  Country: None (occurrence: None)
  Receive Date: 20060228
  Receipt Date: 20050502
  Transmission Date: 20060701
  Serious: No
  Sender: FDA-Public Use
  Company Number: US-GLAXOSMITHKLINE-A0556911A

PATIENT
  Age: 25 Year
  Sex: Female
  Weight: 52.3 kg

DRUGS (4)
  1. LAMICTAL [Suspect]
     Indication: BIPOLAR DISORDER
     Dosage: 25MG PER DAY
     Route: 048
     Dates: start: 20050101, end: 20050101
  2. LITHIUM [Concomitant]
  3. WELLBUTRIN SR [Concomitant]
     Route: 048
  4. RISPERDAL [Concomitant]

REACTIONS (1)
  - ALOPECIA [None]
